FAERS Safety Report 7679162-9 (Version None)
Quarter: 2011Q3

REPORT INFORMATION
  Report Type: 
  Country: None (occurrence: None)
  Receive Date: 20110812
  Receipt Date: 20110808
  Transmission Date: 20111222
  Serious: Yes (Other)
  Sender: FDA-Public Use
  Company Number: US-CEPHALON-US023030

PATIENT
  Sex: Female
  Weight: 64 kg

DRUGS (4)
  1. PROVIGIL [Suspect]
     Indication: FATIGUE
     Route: 048
     Dates: start: 20040101
  2. DURAGESIC-100 [Concomitant]
     Indication: NEURALGIA
     Route: 062
  3. LEXAPRO [Concomitant]
     Indication: DEPRESSION
     Route: 048
  4. NEURONTIN [Concomitant]
     Indication: NEURALGIA
     Route: 048

REACTIONS (4)
  - NAUSEA [None]
  - WEIGHT DECREASED [None]
  - BILIARY DILATATION [None]
  - HEPATOMEGALY [None]
